FAERS Safety Report 7915398 (Version 2)
Quarter: 2014Q3

REPORT INFORMATION
  Report Type: Spontaneous
  Country: FR (occurrence: FR)
  Receive Date: 20110426
  Receipt Date: 20140820
  Transmission Date: 20150326
  Serious: Yes (Other)
  Sender: FDA-Public Use
  Company Number: FR-JNJFOC-20110406465

PATIENT
  Age: 43 Year
  Sex: Female

DRUGS (4)
  1. CORTICOSTEROIDS [Concomitant]
     Active Substance: CORTICOSTEROID NOS
     Indication: COLITIS
  2. IMMUNOSUPPRESANT DRUGS [Concomitant]
     Active Substance: UNSPECIFIED INGREDIENT
  3. INFLIXIMAB [Suspect]
     Active Substance: INFLIXIMAB
     Indication: COLITIS
     Route: 042
  4. CYCLOSPORINE. [Suspect]
     Active Substance: CYCLOSPORINE
     Indication: COLITIS

REACTIONS (1)
  - Cytomegalovirus colitis [Unknown]
